FAERS Safety Report 6817901-7 (Version None)
Quarter: 2010Q3

REPORT INFORMATION
  Report Type: 
  Country: None (occurrence: None)
  Receive Date: 20100706
  Receipt Date: 20100624
  Transmission Date: 20110219
  Serious: Yes (Other)
  Sender: FDA-Public Use
  Company Number: BR-PFIZER INC-2010079081

PATIENT
  Age: 34 Year
  Sex: Female
  Weight: 51 kg

DRUGS (1)
  1. DOSTINEX [Suspect]
     Indication: LACTATION INHIBITION THERAPY
     Dosage: 1.0 MG, SINGLE
     Route: 048
     Dates: start: 20100501, end: 20100501

REACTIONS (7)
  - BLOOD PRESSURE INADEQUATELY CONTROLLED [None]
  - DIZZINESS [None]
  - HEADACHE [None]
  - HEART RATE INCREASED [None]
  - NAUSEA [None]
  - TREMOR [None]
  - VEIN DISORDER [None]
